FAERS Safety Report 18924834 (Version 1)
Quarter: 2021Q1

REPORT INFORMATION
  Report Type: Spontaneous
  Country: US (occurrence: US)
  Receive Date: 20210223
  Receipt Date: 20210223
  Transmission Date: 20210420
  Serious: Yes (Hospitalization, Other)
  Sender: FDA-Public Use
  Company Number: US-UNITED THERAPEUTICS-UNT-2021-001221

PATIENT
  Age: 35 Year
  Sex: Female

DRUGS (4)
  1. REMODULIN [Suspect]
     Active Substance: TREPROSTINIL
     Dosage: 0.0863 ?G/KG, CONTINUING (AT PUMP RATE OF 0.074 ML/HR)
     Route: 058
     Dates: start: 202101, end: 202101
  2. REMODULIN [Suspect]
     Active Substance: TREPROSTINIL
     Indication: PULMONARY ARTERIAL HYPERTENSION
     Dosage: UNK, CONTINUING
     Route: 058
     Dates: start: 20190924
  3. REMODULIN [Suspect]
     Active Substance: TREPROSTINIL
     Dosage: 0.084 ?G/KG, CONTINUING (AT AN INFUSION RATE 0.072 ML/HR)
     Route: 058
     Dates: start: 202101
  4. MACITENTAN [Concomitant]
     Active Substance: MACITENTAN
     Indication: PULMONARY ARTERIAL HYPERTENSION
     Dosage: 10 MG, QD
     Route: 048
     Dates: start: 20191018

REACTIONS (5)
  - Nausea [Unknown]
  - Weight decreased [Unknown]
  - Hypoxia [Unknown]
  - Exercise tolerance decreased [Unknown]
  - Respiratory failure [Unknown]

NARRATIVE: CASE EVENT DATE: 202101
